FAERS Safety Report 22359718 (Version 1)
Quarter: 2023Q2

REPORT INFORMATION
  Report Type: Spontaneous
  Country: US (occurrence: None)
  Receive Date: 20230523
  Receipt Date: 20230523
  Transmission Date: 20230721
  Serious: Yes (Hospitalization)
  Sender: FDA-Public Use
  Company Number: None

PATIENT
  Age: 76 Year
  Sex: Female
  Weight: 64.59 kg

DRUGS (23)
  1. CYCLOPHOSPHAMIDE [Suspect]
     Active Substance: CYCLOPHOSPHAMIDE
     Indication: Breast cancer female
     Dosage: FREQUENCY : DAILY;?
     Route: 048
     Dates: start: 202305
  2. ALEVE [Concomitant]
     Active Substance: NAPROXEN SODIUM
  3. AMITRIPTYLINE [Concomitant]
     Active Substance: AMITRIPTYLINE
  4. CALTRATE 600 + D [Concomitant]
  5. CEPHALEXIN [Concomitant]
     Active Substance: CEPHALEXIN
  6. COMBIGAN [Concomitant]
     Active Substance: BRIMONIDINE TARTRATE\TIMOLOL MALEATE
  7. DULOXETINE [Concomitant]
     Active Substance: DULOXETINE
  8. FENTANYL [Concomitant]
     Active Substance: FENTANYL
  9. GABAPENTIN [Concomitant]
     Active Substance: GABAPENTIN
  10. HYDROCHLOROTHIAZIDE [Concomitant]
     Active Substance: HYDROCHLOROTHIAZIDE
  11. KLOR-CON [Concomitant]
     Active Substance: POTASSIUM CHLORIDE
  12. LATANOPROST [Concomitant]
     Active Substance: LATANOPROST
  13. LEVOTHYROXINE [Concomitant]
     Active Substance: LEVOTHYROXINE
  14. MELATONIN [Concomitant]
     Active Substance: MELATONIN
  15. MYRBETRIQ [Concomitant]
     Active Substance: MIRABEGRON
  16. NARCAN [Concomitant]
     Active Substance: NALOXONE HYDROCHLORIDE
  17. NORCO [Concomitant]
     Active Substance: ACETAMINOPHEN\HYDROCODONE BITARTRATE
  18. OLANZAPINE [Concomitant]
     Active Substance: OLANZAPINE
  19. OMEPRAZOLE [Concomitant]
     Active Substance: OMEPRAZOLE
  20. ONDANSETRON [Concomitant]
     Active Substance: ONDANSETRON
  21. PHENAZOPYRIDINE [Concomitant]
     Active Substance: PHENAZOPYRIDINE
  22. PROCHLORPERAZINE [Concomitant]
     Active Substance: PROCHLORPERAZINE
  23. SIMVASTATIN [Concomitant]
     Active Substance: SIMVASTATIN

REACTIONS (3)
  - Nausea [None]
  - Vomiting [None]
  - Confusional state [None]

NARRATIVE: CASE EVENT DATE: 20230521
